FAERS Safety Report 11177222 (Version 1)
Quarter: 2015Q2

REPORT INFORMATION
  Report Type: Spontaneous
  Country: US (occurrence: None)
  Receive Date: 20150515
  Receipt Date: 20150515
  Transmission Date: 20150821
  Serious: Yes (Hospitalization)
  Sender: FDA-Public Use
  Company Number: 2015006291

PATIENT
  Sex: Male

DRUGS (1)
  1. CIMZIA [Suspect]
     Active Substance: CERTOLIZUMAB PEGOL
     Indication: AUTOIMMUNE DISORDER
     Dosage: 400 MG, EV 4 WEEKS (STRENGTH: 200 MG PFS 2/PKG), SUBCUTANEOUS
     Route: 058

REACTIONS (1)
  - Crohn^s disease [None]
